FAERS Safety Report 11056260 (Version 1)
Quarter: 2015Q2

REPORT INFORMATION
  Report Type: Spontaneous
  Country: FR (occurrence: FR)
  Receive Date: 20150422
  Receipt Date: 20150422
  Transmission Date: 20150821
  Serious: Yes (Hospitalization)
  Sender: FDA-Public Use
  Company Number: FR-DSJP-DSE-2015-112535

PATIENT

DRUGS (4)
  1. MEDIATENSYL                        /00631801/ [Concomitant]
     Active Substance: URAPIDIL
     Indication: HYPERTENSION
     Dosage: UNK
     Route: 048
     Dates: end: 201502
  2. AXELER [Suspect]
     Active Substance: AMLODIPINE BESYLATE\OLMESARTAN MEDOXOMIL
     Route: 048
     Dates: start: 20150218, end: 20150227
  3. MEDIATENSYL                        /00631801/ [Concomitant]
     Active Substance: URAPIDIL
     Dosage: UNK
     Route: 048
     Dates: start: 20150218, end: 20150227
  4. AXELER [Suspect]
     Active Substance: AMLODIPINE BESYLATE\OLMESARTAN MEDOXOMIL
     Indication: HYPERTENSION
     Route: 048
     Dates: start: 201212, end: 201502

REACTIONS (3)
  - Hypokalaemia [Unknown]
  - Intestinal villi atrophy [Unknown]
  - Malabsorption [Recovered/Resolved]

NARRATIVE: CASE EVENT DATE: 201501
